FAERS Safety Report 22976464 (Version 7)
Quarter: 2024Q3

REPORT INFORMATION
  Report Type: Report from Study
  Country: US (occurrence: US)
  Receive Date: 20230925
  Receipt Date: 20240923
  Transmission Date: 20241017
  Serious: Yes (Hospitalization)
  Sender: JAZZ
  Company Number: US-JAZZ PHARMACEUTICALS-2023-US-019754

PATIENT
  Age: 64 Year
  Sex: Female

DRUGS (66)
  1. SODIUM OXYBATE [Suspect]
     Active Substance: SODIUM OXYBATE
     Indication: Insomnia
     Dosage: 4.5 MILLILITER, BID
     Route: 048
     Dates: start: 20230911
  2. SODIUM OXYBATE [Suspect]
     Active Substance: SODIUM OXYBATE
     Dosage: 4.5 GRAM, BID
  3. CITALOPRAM HYDROBROMIDE [Suspect]
     Active Substance: CITALOPRAM HYDROBROMIDE
     Indication: Anxiety
     Dosage: UNK
     Dates: start: 20200101
  4. ACETAMINOPHEN\HYDROCODONE [Concomitant]
     Active Substance: ACETAMINOPHEN\HYDROCODONE
     Indication: Product used for unknown indication
     Dosage: UNK
     Dates: start: 20150930
  5. LIPITOR [Concomitant]
     Active Substance: ATORVASTATIN CALCIUM
     Indication: Product used for unknown indication
     Dosage: UNK
     Dates: start: 20170301
  6. ONDANSETRON [Concomitant]
     Active Substance: ONDANSETRON
     Indication: Product used for unknown indication
     Dosage: UNK
  7. ONDANSETRON [Concomitant]
     Active Substance: ONDANSETRON
     Dosage: UNK
  8. ONDANSETRON [Concomitant]
     Active Substance: ONDANSETRON
     Dosage: UNK
  9. PROMETHAZINE HYDROCHLORIDE [Concomitant]
     Active Substance: PROMETHAZINE HYDROCHLORIDE
     Indication: Product used for unknown indication
     Dosage: UNK
  10. PROMETHAZINE HYDROCHLORIDE [Concomitant]
     Active Substance: PROMETHAZINE HYDROCHLORIDE
     Dosage: UNK
  11. PROMETHAZINE HYDROCHLORIDE [Concomitant]
     Active Substance: PROMETHAZINE HYDROCHLORIDE
     Dosage: UNK
  12. FOLIC ACID [Concomitant]
     Active Substance: FOLIC ACID
     Indication: Product used for unknown indication
     Dosage: UNK
  13. FOLIC ACID [Concomitant]
     Active Substance: FOLIC ACID
     Dosage: UNK
  14. FOLIC ACID [Concomitant]
     Active Substance: FOLIC ACID
     Dosage: UNK
  15. OMEPRAZOLE [Concomitant]
     Active Substance: OMEPRAZOLE
     Indication: Product used for unknown indication
     Dosage: UNK
  16. OMEPRAZOLE [Concomitant]
     Active Substance: OMEPRAZOLE
     Dosage: UNK
  17. OMEPRAZOLE [Concomitant]
     Active Substance: OMEPRAZOLE
     Dosage: UNK
  18. PREDNISONE [Concomitant]
     Active Substance: PREDNISONE
     Indication: Product used for unknown indication
     Dosage: UNK
  19. PREDNISONE [Concomitant]
     Active Substance: PREDNISONE
     Dosage: UNK
  20. PREDNISONE [Concomitant]
     Active Substance: PREDNISONE
     Dosage: UNK
  21. MUPIROCIN [Concomitant]
     Active Substance: MUPIROCIN
     Indication: Product used for unknown indication
     Dosage: UNK
  22. MUPIROCIN [Concomitant]
     Active Substance: MUPIROCIN
     Dosage: UNK
  23. MUPIROCIN [Concomitant]
     Active Substance: MUPIROCIN
     Dosage: UNK
  24. DIVALPROEX SODIUM [Concomitant]
     Active Substance: DIVALPROEX SODIUM
     Indication: Product used for unknown indication
     Dosage: UNK
  25. DIVALPROEX SODIUM [Concomitant]
     Active Substance: DIVALPROEX SODIUM
     Dosage: UNK
  26. DIVALPROEX SODIUM [Concomitant]
     Active Substance: DIVALPROEX SODIUM
     Dosage: UNK
  27. ALPRAZOLAM [Concomitant]
     Active Substance: ALPRAZOLAM
     Indication: Product used for unknown indication
     Dosage: UNK
  28. ALPRAZOLAM [Concomitant]
     Active Substance: ALPRAZOLAM
     Dosage: UNK
  29. ALPRAZOLAM [Concomitant]
     Active Substance: ALPRAZOLAM
     Dosage: UNK
  30. CLINDAMYCIN HYDROCHLORIDE [Concomitant]
     Active Substance: CLINDAMYCIN HYDROCHLORIDE
     Indication: Product used for unknown indication
     Dosage: UNK
  31. CLINDAMYCIN HYDROCHLORIDE [Concomitant]
     Active Substance: CLINDAMYCIN HYDROCHLORIDE
     Dosage: UNK
  32. CLINDAMYCIN HYDROCHLORIDE [Concomitant]
     Active Substance: CLINDAMYCIN HYDROCHLORIDE
     Dosage: UNK
  33. ATORVASTATIN CALCIUM [Concomitant]
     Active Substance: ATORVASTATIN CALCIUM
     Indication: Product used for unknown indication
     Dosage: UNK
  34. ATORVASTATIN CALCIUM [Concomitant]
     Active Substance: ATORVASTATIN CALCIUM
     Dosage: UNK
  35. ATORVASTATIN CALCIUM [Concomitant]
     Active Substance: ATORVASTATIN CALCIUM
     Dosage: UNK
  36. ESTRADIOL [Concomitant]
     Active Substance: ESTRADIOL
     Indication: Product used for unknown indication
     Dosage: UNK
  37. ESTRADIOL [Concomitant]
     Active Substance: ESTRADIOL
     Dosage: UNK
  38. ESTRADIOL [Concomitant]
     Active Substance: ESTRADIOL
     Dosage: UNK
  39. OXYCODONE HYDROCHLORIDE [Concomitant]
     Active Substance: OXYCODONE HYDROCHLORIDE
     Indication: Migraine
     Dosage: UNK
  40. OXYCODONE HYDROCHLORIDE [Concomitant]
     Active Substance: OXYCODONE HYDROCHLORIDE
     Dosage: UNK
  41. OXYCODONE HYDROCHLORIDE [Concomitant]
     Active Substance: OXYCODONE HYDROCHLORIDE
     Dosage: UNK
  42. ASPIRIN [Concomitant]
     Active Substance: ASPIRIN
     Indication: Product used for unknown indication
     Dosage: UNK
  43. ASPIRIN [Concomitant]
     Active Substance: ASPIRIN
     Dosage: UNK
  44. ASPIRIN [Concomitant]
     Active Substance: ASPIRIN
     Dosage: UNK
  45. LORATADINE [Concomitant]
     Active Substance: LORATADINE
     Indication: Product used for unknown indication
     Dosage: UNK
  46. LORATADINE [Concomitant]
     Active Substance: LORATADINE
     Dosage: UNK
  47. LORATADINE [Concomitant]
     Active Substance: LORATADINE
     Dosage: UNK
  48. ALENDRONATE SODIUM [Concomitant]
     Active Substance: ALENDRONATE SODIUM
     Indication: Product used for unknown indication
     Dosage: UNK
  49. ALENDRONATE SODIUM [Concomitant]
     Active Substance: ALENDRONATE SODIUM
     Dosage: UNK
  50. ALENDRONATE SODIUM [Concomitant]
     Active Substance: ALENDRONATE SODIUM
     Dosage: UNK
  51. ELETRIPTAN HYDROBROMIDE [Concomitant]
     Active Substance: ELETRIPTAN HYDROBROMIDE
     Indication: Product used for unknown indication
     Dosage: UNK
  52. ELETRIPTAN HYDROBROMIDE [Concomitant]
     Active Substance: ELETRIPTAN HYDROBROMIDE
     Dosage: UNK
  53. ELETRIPTAN HYDROBROMIDE [Concomitant]
     Active Substance: ELETRIPTAN HYDROBROMIDE
     Dosage: UNK
  54. SUCRALFATE [Concomitant]
     Active Substance: SUCRALFATE
     Indication: Product used for unknown indication
     Dosage: UNK
  55. SUCRALFATE [Concomitant]
     Active Substance: SUCRALFATE
     Dosage: UNK
  56. SUCRALFATE [Concomitant]
     Active Substance: SUCRALFATE
     Dosage: UNK
  57. TIZANIDINE HYDROCHLORIDE [Concomitant]
     Active Substance: TIZANIDINE HYDROCHLORIDE
     Indication: Product used for unknown indication
     Dosage: UNK
  58. TIZANIDINE HYDROCHLORIDE [Concomitant]
     Active Substance: TIZANIDINE HYDROCHLORIDE
     Dosage: UNK
  59. TIZANIDINE HYDROCHLORIDE [Concomitant]
     Active Substance: TIZANIDINE HYDROCHLORIDE
     Dosage: UNK
  60. DEPAKOTE [Concomitant]
     Active Substance: DIVALPROEX SODIUM
     Indication: Product used for unknown indication
     Dosage: UNK
  61. DEPAKOTE [Concomitant]
     Active Substance: DIVALPROEX SODIUM
     Dosage: UNK
  62. DEPAKOTE [Concomitant]
     Active Substance: DIVALPROEX SODIUM
     Dosage: UNK
  63. ELETRIPTAN HYDROBROMIDE [Concomitant]
     Active Substance: ELETRIPTAN HYDROBROMIDE
     Indication: Product used for unknown indication
     Dosage: UNK
  64. ACETAMINOPHEN\HYDROCODONE [Concomitant]
     Active Substance: ACETAMINOPHEN\HYDROCODONE
     Indication: Product used for unknown indication
     Dosage: UNK
     Dates: start: 20150930
  65. ONDANSETRON [Concomitant]
     Active Substance: ONDANSETRON
     Indication: Product used for unknown indication
     Dosage: UNK
  66. TRAZODONE [Concomitant]
     Active Substance: TRAZODONE HYDROCHLORIDE
     Dosage: UNK
     Dates: start: 20240117

REACTIONS (10)
  - Surgery [Unknown]
  - Tremor [Recovered/Resolved]
  - Tooth extraction [Unknown]
  - Blood pressure decreased [Unknown]
  - Night sweats [Unknown]
  - Dehydration [Unknown]
  - Illness [Unknown]
  - Off label use [Unknown]
  - Product dose omission in error [Unknown]
  - Product administration interrupted [Unknown]

NARRATIVE: CASE EVENT DATE: 20231031
